FAERS Safety Report 7538323-X (Version None)
Quarter: 2011Q2

REPORT INFORMATION
  Report Type: 
  Country: None (occurrence: None)
  Receive Date: 20110609
  Receipt Date: 20070309
  Transmission Date: 20111010
  Serious: Yes (Hospitalization, Other)
  Sender: FDA-Public Use
  Company Number: PHFR2006GB02330

PATIENT
  Sex: Male
  Weight: 68 kg

DRUGS (1)
  1. CLOZAPINE [Suspect]
     Indication: SCHIZOPHRENIA
     Dosage: 300 MG,DAILY
     Route: 048
     Dates: start: 20020625

REACTIONS (4)
  - CHEST PAIN [None]
  - LOWER RESPIRATORY TRACT INFECTION [None]
  - LUNG NEOPLASM MALIGNANT [None]
  - SUBCUTANEOUS NODULE [None]
